FAERS Safety Report 7072129-3 (Version None)
Quarter: 2010Q4

REPORT INFORMATION
  Report Type: 
  Country: None (occurrence: None)
  Receive Date: 20101029
  Receipt Date: 20091204
  Transmission Date: 20110411
  Serious: No
  Sender: FDA-Public Use
  Company Number: A0833616A

PATIENT
  Age: 65 Year
  Sex: Female

DRUGS (7)
  1. ADVAIR DISKUS 100/50 [Suspect]
     Indication: CHRONIC OBSTRUCTIVE PULMONARY DISEASE
     Route: 055
     Dates: start: 20081201
  2. GABAPENTIN [Concomitant]
  3. TRAMADOL [Concomitant]
  4. TRIAMTERENE [Concomitant]
  5. LEXAPRO [Concomitant]
  6. PREMPRO [Concomitant]
  7. KLONOPIN [Concomitant]

REACTIONS (4)
  - CANDIDIASIS [None]
  - DYSPNOEA [None]
  - HERPES ZOSTER [None]
  - OROPHARYNGEAL PAIN [None]
